FAERS Safety Report 22000740 (Version 3)
Quarter: 2023Q1

REPORT INFORMATION
  Report Type: Report from Study
  Country: US (occurrence: US)
  Receive Date: 20230216
  Receipt Date: 20230324
  Transmission Date: 20230418
  Serious: No
  Sender: FDA-Public Use
  Company Number: US-002147023-NVSC2023US036119

PATIENT
  Sex: Female

DRUGS (1)
  1. PIQRAY [Suspect]
     Active Substance: ALPELISIB
     Indication: Product used for unknown indication
     Dosage: UNK
     Route: 048
     Dates: start: 20230208

REACTIONS (6)
  - Feeling abnormal [Unknown]
  - Abdominal discomfort [Unknown]
  - Feeding disorder [Unknown]
  - Fatigue [Unknown]
  - Dehydration [Unknown]
  - Drug ineffective [Unknown]
